FAERS Safety Report 12899158 (Version 1)
Quarter: 2016Q4

REPORT INFORMATION
  Report Type: Spontaneous
  Country: JP (occurrence: JP)
  Receive Date: 20161101
  Receipt Date: 20161101
  Transmission Date: 20170207
  Serious: Yes (Other)
  Sender: FDA-Public Use
  Company Number: JP-ORION CORPORATION ORION PHARMA-ENT 2016-0207

PATIENT
  Age: 77 Year
  Sex: Male

DRUGS (4)
  1. FP-OD [Concomitant]
     Active Substance: SELEGILINE HYDROCHLORIDE
     Route: 065
  2. COMTAN [Suspect]
     Active Substance: ENTACAPONE
     Indication: PARKINSON^S DISEASE
     Route: 048
     Dates: start: 200806
  3. MADOPAR [Concomitant]
     Active Substance: BENSERAZIDE HYDROCHLORIDE\LEVODOPA
     Route: 065
  4. MUCODYNE [Concomitant]
     Active Substance: CARBOCYSTEINE
     Route: 065

REACTIONS (7)
  - Product size issue [Unknown]
  - Wrong technique in product usage process [Unknown]
  - Product difficult to swallow [Not Recovered/Not Resolved]
  - Parkinson^s disease [Unknown]
  - Product quality issue [Unknown]
  - Foreign body [Unknown]
  - Oropharyngeal discomfort [Unknown]

NARRATIVE: CASE EVENT DATE: 201610
